FAERS Safety Report 7093061-5 (Version None)
Quarter: 2010Q4

REPORT INFORMATION
  Report Type: 
  Country: None (occurrence: None)
  Receive Date: 20101110
  Receipt Date: 20101028
  Transmission Date: 20110411
  Serious: Yes (Hospitalization, Other)
  Sender: FDA-Public Use
  Company Number: US-ELI_LILLY_AND_COMPANY-US201010007319

PATIENT
  Sex: Male

DRUGS (3)
  1. HUMALOG [Suspect]
     Indication: TYPE 2 DIABETES MELLITUS
     Dosage: UNK, OTHER
  2. HUMALOG [Suspect]
     Dosage: UNK, OTHER
  3. BYETTA [Concomitant]
     Dosage: UNK, 2/D
     Dates: start: 20080101

REACTIONS (3)
  - CARDIAC FAILURE CONGESTIVE [None]
  - DRUG DISPENSING ERROR [None]
  - RENAL DISORDER [None]
